FAERS Safety Report 8987215 (Version 2)
Quarter: 2012Q4

REPORT INFORMATION
  Report Type: Report from Study
  Country: RU (occurrence: RU)
  Receive Date: 20121226
  Receipt Date: 20121231
  Transmission Date: 20130627
  Serious: Yes (Other)
  Sender: FDA-Public Use
  Company Number: RU-ROCHE-1174255

PATIENT
  Age: 60 Year
  Sex: Female
  Weight: 77 kg

DRUGS (6)
  1. BEVACIZUMAB [Suspect]
     Indication: COLON CANCER
     Route: 065
     Dates: start: 20120203
  2. 5-FLUOROURACIL [Concomitant]
     Indication: COLON CANCER
     Route: 040
     Dates: start: 20120203, end: 20120525
  3. 5-FLUOROURACIL [Concomitant]
     Indication: COLON CANCER
     Route: 041
     Dates: start: 20120203, end: 20120525
  4. LEUCOVORIN [Concomitant]
     Indication: COLON CANCER
     Route: 041
     Dates: start: 20120203, end: 20120525
  5. IRINOTECAN [Concomitant]
     Indication: COLON CANCER
     Route: 041
     Dates: start: 20120203, end: 20120525
  6. MITOMYCIN [Concomitant]
     Indication: COLON CANCER
     Route: 065
     Dates: start: 20121221

REACTIONS (1)
  - Disease progression [Recovered/Resolved]
